FAERS Safety Report 6335607-8 (Version None)
Quarter: 2009Q3

REPORT INFORMATION
  Report Type: 
  Country: None (occurrence: None)
  Receive Date: 20090826
  Receipt Date: 20090813
  Transmission Date: 20100115
  Serious: Yes (Hospitalization)
  Sender: FDA-Public Use
  Company Number: 1000008301

PATIENT
  Age: 36 Year
  Sex: Female

DRUGS (3)
  1. CITALOPRAM HYDROBROMIDE [Suspect]
     Dosage: ORAL
     Route: 048
     Dates: start: 20080107, end: 20090102
  2. INTRON A [Suspect]
     Dosage: 4.2857 IUM (10 IUM, 3 IN 1 WK); 6.4286 IUM (15 IUM, 3 IN 1WK)
     Dates: start: 20080101, end: 20080601
  3. INTRON A [Suspect]
     Dosage: 4.2857 IUM (10 IUM, 3 IN 1 WK); 6.4286 IUM (15 IUM, 3 IN 1WK)
     Dates: start: 20080620, end: 20090102

REACTIONS (4)
  - BLADDER DISORDER [None]
  - MICTURITION URGENCY [None]
  - POLLAKIURIA [None]
  - RASH MACULAR [None]
